FAERS Safety Report 6593676-4 (Version None)
Quarter: 2010Q1

REPORT INFORMATION
  Report Type: 
  Country: None (occurrence: None)
  Receive Date: 20100222
  Receipt Date: 20091030
  Transmission Date: 20100710
  Serious: Yes (Other)
  Sender: FDA-Public Use
  Company Number: US-BRISTOL-MYERS SQUIBB COMPANY-14838247

PATIENT
  Sex: Female

DRUGS (5)
  1. ORENCIA [Suspect]
     Indication: RHEUMATOID ARTHRITIS
  2. FOLIC ACID [Concomitant]
  3. PREDNISONE [Concomitant]
  4. METHOTREXATE [Concomitant]
  5. CALCIUM + VITAMIN D [Concomitant]

REACTIONS (5)
  - COUGH [None]
  - CYANOSIS [None]
  - LACRIMATION INCREASED [None]
  - MUSCLE TIGHTNESS [None]
  - RASH GENERALISED [None]
